FAERS Safety Report 9121595 (Version 6)
Quarter: 2013Q3

REPORT INFORMATION
  Report Type: Spontaneous
  Country: CO (occurrence: CO)
  Receive Date: 20130227
  Receipt Date: 20130705
  Transmission Date: 20140515
  Serious: Yes (Other)
  Sender: FDA-Public Use
  Company Number: CO-AMGEN-COLSP2013012626

PATIENT
  Age: 61 Year
  Sex: Female
  Weight: 74 kg

DRUGS (12)
  1. ENBREL [Suspect]
     Indication: RHEUMATOID ARTHRITIS
     Dosage: 50 MG, WEEKLY
     Route: 058
     Dates: start: 20121214, end: 201302
  2. ENBREL [Suspect]
     Dosage: 50 MG, QWK
     Route: 058
     Dates: start: 20130301
  3. ARTENSOL [Suspect]
     Indication: HYPERTENSION
     Dosage: 50 MG, 1X/DAY
     Route: 048
     Dates: start: 2007
  4. ACETAMINOPHEN [Suspect]
     Indication: PAIN
     Dosage: UNK
     Route: 065
  5. SINALGEN [Suspect]
     Indication: PAIN
     Dosage: UNK
     Route: 065
  6. ARAVA [Concomitant]
     Indication: RHEUMATOID ARTHRITIS
     Dosage: 75 MG, 1X/DAY
     Route: 048
     Dates: start: 2011
  7. AMLODIPINE [Concomitant]
     Indication: HYPERTENSION
     Dosage: 5 MG, 1X/DAY
     Route: 048
     Dates: start: 2007, end: 20130304
  8. OMEPRAZOL                          /00661201/ [Concomitant]
     Indication: GASTRITIS
     Dosage: 20 MG, 2X/DAY
     Route: 048
     Dates: start: 1993
  9. CALCIUM [Concomitant]
     Dosage: UNK
     Route: 065
  10. GLUCOSAMINE [Concomitant]
     Dosage: UNK
     Route: 065
  11. CALCITRIOL [Concomitant]
     Dosage: UNK
     Route: 065
  12. LOSARTAN [Concomitant]
     Indication: HYPERTENSION
     Dosage: UNK
     Route: 065
     Dates: end: 20130304

REACTIONS (18)
  - Diarrhoea haemorrhagic [Recovered/Resolved]
  - Insomnia [Not Recovered/Not Resolved]
  - Dyspnoea [Not Recovered/Not Resolved]
  - Pyrexia [Not Recovered/Not Resolved]
  - Swelling face [Not Recovered/Not Resolved]
  - Tonsillar inflammation [Not Recovered/Not Resolved]
  - Hypoaesthesia [Not Recovered/Not Resolved]
  - Muscle spasms [Not Recovered/Not Resolved]
  - Abdominal pain upper [Recovered/Resolved]
  - Gastritis [Recovered/Resolved]
  - Headache [Unknown]
  - Hypertension [Not Recovered/Not Resolved]
  - Arthralgia [Not Recovered/Not Resolved]
  - Back pain [Not Recovered/Not Resolved]
  - Pain in extremity [Not Recovered/Not Resolved]
  - Musculoskeletal pain [Not Recovered/Not Resolved]
  - Drug ineffective [Not Recovered/Not Resolved]
  - Injection site erythema [Not Recovered/Not Resolved]
